FAERS Safety Report 10072692 (Version 1)
Quarter: 2014Q2

REPORT INFORMATION
  Report Type: Spontaneous
  Country: US (occurrence: US)
  Receive Date: 20140411
  Receipt Date: 20140411
  Transmission Date: 20141212
  Serious: No
  Sender: FDA-Public Use
  Company Number: US-PFIZER INC-2014100517

PATIENT
  Age: 61 Year
  Sex: Female

DRUGS (1)
  1. SOLU-MEDROL [Suspect]
     Dosage: 1000 UG, DAILY (QD)
     Route: 042
     Dates: start: 20101008, end: 20101010

REACTIONS (3)
  - Poor quality sleep [Unknown]
  - Energy increased [Unknown]
  - Dysgeusia [Unknown]
